FAERS Safety Report 4506841-4 (Version None)
Quarter: 2004Q4

REPORT INFORMATION
  Report Type: 
  Country: None (occurrence: None)
  Receive Date: 20041122
  Receipt Date: 20041005
  Transmission Date: 20050328
  Serious: Yes (Other)
  Sender: FDA-Public Use
  Company Number: PHNU2004DE03430

PATIENT
  Age: 59 Year
  Sex: Female
  Weight: 70 kg

DRUGS (8)
  1. ZOMETA [Suspect]
     Indication: METASTASES TO BONE
     Dosage: 4 MG, QMO
     Dates: start: 20030715, end: 20040820
  2. HERCEPTIN [Concomitant]
     Indication: BREAST CANCER FEMALE
     Route: 065
     Dates: start: 20030717, end: 20040914
  3. HERCEPTIN [Concomitant]
     Route: 065
     Dates: start: 20041015
  4. TAXOL [Concomitant]
     Indication: BREAST CANCER FEMALE
     Dates: start: 20030717, end: 20040106
  5. KEVATRIL [Concomitant]
     Route: 065
     Dates: start: 20030718, end: 20040106
  6. DEXAMETHASONE [Concomitant]
     Route: 065
     Dates: start: 20030718, end: 20040106
  7. TAVEGIL [Concomitant]
     Route: 065
     Dates: start: 20030718, end: 20040106
  8. TAGAMET [Concomitant]
     Route: 065
     Dates: start: 20030718, end: 20040106

REACTIONS (6)
  - BLOOD CALCIUM DECREASED [None]
  - BLOOD CREATININE INCREASED [None]
  - HYPERTENSION [None]
  - NEPHROTIC SYNDROME [None]
  - OLIGURIA [None]
  - RENAL FAILURE [None]
